FAERS Safety Report 4655089-1 (Version None)
Quarter: 2005Q2

REPORT INFORMATION
  Report Type: 
  Country: None (occurrence: None)
  Receive Date: 20050503
  Receipt Date: 20050420
  Transmission Date: 20051028
  Serious: Yes (Hospitalization)
  Sender: FDA-Public Use
  Company Number: 2005CG00661

PATIENT
  Age: 69 Year
  Sex: Male

DRUGS (3)
  1. NAROPIN [Suspect]
     Indication: ANALGESIC EFFECT
     Dosage: 225 MG ONCE IF
     Dates: start: 20050301, end: 20050301
  2. NAROPIN [Suspect]
     Indication: POSTOPERATIVE CARE
     Dosage: 225 MG ONCE IF
     Dates: start: 20050301, end: 20050301
  3. OFLOCET [Concomitant]

REACTIONS (5)
  - INJECTION SITE INFECTION [None]
  - NOSOCOMIAL INFECTION [None]
  - POSTOPERATIVE INFECTION [None]
  - STREPTOCOCCAL INFECTION [None]
  - WOUND INFECTION STAPHYLOCOCCAL [None]
